FAERS Safety Report 25274045 (Version 1)
Quarter: 2025Q2

REPORT INFORMATION
  Report Type: Spontaneous
  Country: US (occurrence: US)
  Receive Date: 20250506
  Receipt Date: 20250506
  Transmission Date: 20250716
  Serious: Yes (Other)
  Sender: MYLAN
  Company Number: US-MYLANLABS-2025M1037123

PATIENT
  Age: 19 Year
  Sex: Female

DRUGS (24)
  1. GABAPENTIN [Suspect]
     Active Substance: GABAPENTIN
     Indication: Product used for unknown indication
  2. GABAPENTIN [Suspect]
     Active Substance: GABAPENTIN
     Route: 065
  3. GABAPENTIN [Suspect]
     Active Substance: GABAPENTIN
     Route: 065
  4. GABAPENTIN [Suspect]
     Active Substance: GABAPENTIN
  5. LUMRYZ [Suspect]
     Active Substance: SODIUM OXYBATE
     Indication: Narcolepsy
     Dosage: 4.5 GRAM, PM (ONCE NIGHT, PROLONGED RELEASE)
     Dates: start: 202503, end: 2025
  6. LUMRYZ [Suspect]
     Active Substance: SODIUM OXYBATE
     Dosage: 4.5 GRAM, PM (ONCE NIGHT, PROLONGED RELEASE)
     Dates: start: 202503, end: 2025
  7. LUMRYZ [Suspect]
     Active Substance: SODIUM OXYBATE
     Dosage: 4.5 GRAM, PM (ONCE NIGHT, PROLONGED RELEASE)
     Route: 048
     Dates: start: 202503, end: 2025
  8. LUMRYZ [Suspect]
     Active Substance: SODIUM OXYBATE
     Dosage: 4.5 GRAM, PM (ONCE NIGHT, PROLONGED RELEASE)
     Route: 048
     Dates: start: 202503, end: 2025
  9. LUMRYZ [Suspect]
     Active Substance: SODIUM OXYBATE
     Dosage: 6 GRAM, PM (ONCE NIGHT, PROLONGED RELEASE)
     Dates: start: 2025, end: 20250411
  10. LUMRYZ [Suspect]
     Active Substance: SODIUM OXYBATE
     Dosage: 6 GRAM, PM (ONCE NIGHT, PROLONGED RELEASE)
     Dates: start: 2025, end: 20250411
  11. LUMRYZ [Suspect]
     Active Substance: SODIUM OXYBATE
     Dosage: 6 GRAM, PM (ONCE NIGHT, PROLONGED RELEASE)
     Route: 048
     Dates: start: 2025, end: 20250411
  12. LUMRYZ [Suspect]
     Active Substance: SODIUM OXYBATE
     Dosage: 6 GRAM, PM (ONCE NIGHT, PROLONGED RELEASE)
     Route: 048
     Dates: start: 2025, end: 20250411
  13. BUSPIRONE [Concomitant]
     Active Substance: BUSPIRONE HYDROCHLORIDE
  14. BUSPIRONE [Concomitant]
     Active Substance: BUSPIRONE HYDROCHLORIDE
     Route: 065
  15. BUSPIRONE [Concomitant]
     Active Substance: BUSPIRONE HYDROCHLORIDE
     Route: 065
  16. BUSPIRONE [Concomitant]
     Active Substance: BUSPIRONE HYDROCHLORIDE
  17. ARMODAFINIL [Concomitant]
     Active Substance: ARMODAFINIL
  18. ARMODAFINIL [Concomitant]
     Active Substance: ARMODAFINIL
     Route: 065
  19. ARMODAFINIL [Concomitant]
     Active Substance: ARMODAFINIL
     Route: 065
  20. ARMODAFINIL [Concomitant]
     Active Substance: ARMODAFINIL
  21. SUNOSI [Concomitant]
     Active Substance: SOLRIAMFETOL
  22. SUNOSI [Concomitant]
     Active Substance: SOLRIAMFETOL
     Route: 065
  23. SUNOSI [Concomitant]
     Active Substance: SOLRIAMFETOL
     Route: 065
  24. SUNOSI [Concomitant]
     Active Substance: SOLRIAMFETOL

REACTIONS (10)
  - Hallucination [Unknown]
  - Paranoia [Unknown]
  - Middle insomnia [Unknown]
  - Brain fog [Unknown]
  - Nausea [Unknown]
  - Vision blurred [Unknown]
  - Dizziness [Unknown]
  - Depression [Unknown]
  - Anxiety [Unknown]
  - Cough [Unknown]

NARRATIVE: CASE EVENT DATE: 20250301
